FAERS Safety Report 5620251-8 (Version None)
Quarter: 2008Q1

REPORT INFORMATION
  Report Type: 
  Country: None (occurrence: None)
  Receive Date: 20080208
  Receipt Date: 20080131
  Transmission Date: 20080703
  Serious: Yes (Other)
  Sender: FDA-Public Use
  Company Number: B0505037A

PATIENT
  Age: 70 Year
  Sex: Male

DRUGS (7)
  1. AVANDAMET [Suspect]
     Route: 048
     Dates: start: 20071222, end: 20080101
  2. AMLODIPINO [Concomitant]
     Dosage: 5MG PER DAY
     Route: 048
  3. DOXAZOSINA [Concomitant]
     Dosage: 4MG PER DAY
     Route: 048
  4. IRBESARTAN - HYDROCHLOROTHIAZIDE [Concomitant]
     Route: 048
  5. LOVASTATIN [Concomitant]
     Dosage: 10MG PER DAY
     Route: 048
  6. NORPRAMIN [Concomitant]
     Indication: PROPHYLAXIS
     Route: 065
  7. MESTINON [Concomitant]
     Indication: MYASTHENIA GRAVIS

REACTIONS (2)
  - EYELID PTOSIS [None]
  - MYASTHENIA GRAVIS [None]
